FAERS Safety Report 6080015-0 (Version None)
Quarter: 2009Q1

REPORT INFORMATION
  Report Type: 
  Country: None (occurrence: None)
  Receive Date: 20090217
  Receipt Date: 20090208
  Transmission Date: 20090719
  Serious: Yes (Hospitalization)
  Sender: FDA-Public Use
  Company Number: US-AVENTIS-200911023US

PATIENT
  Sex: Female

DRUGS (4)
  1. LANTUS [Suspect]
     Indication: TYPE 2 DIABETES MELLITUS
  2. OPTICLIK (INSULIN INJECTION PEN) [Suspect]
     Indication: TYPE 2 DIABETES MELLITUS
     Dates: start: 20060101
  3. ASPIRIN [Concomitant]
     Dosage: DOSE: UNK
  4. ANTIHYPERTENSIVES [Concomitant]
     Dosage: DOSE: UNK

REACTIONS (3)
  - ACCIDENTAL OVERDOSE [None]
  - BALANCE DISORDER [None]
  - LOSS OF CONSCIOUSNESS [None]
